FAERS Safety Report 26077805 (Version 1)
Quarter: 2025Q4

REPORT INFORMATION
  Report Type: Spontaneous
  Country: US (occurrence: US)
  Receive Date: 20251122
  Receipt Date: 20251122
  Transmission Date: 20260118
  Serious: Yes (Other)
  Sender: MDD OPERATIONS
  Company Number: US-MDD US Operations-MDD202510-004103

PATIENT
  Age: 57 Year
  Sex: Female

DRUGS (10)
  1. ONAPGO [Suspect]
     Active Substance: APOMORPHINE HYDROCHLORIDE
     Indication: Parkinson^s disease
     Dosage: 1MG PER HOUR
  2. VALSARTAN [Concomitant]
     Active Substance: VALSARTAN
     Dosage: NOT PROVIDED
  3. NIFEDIPINE [Concomitant]
     Active Substance: NIFEDIPINE
     Dosage: NOT PROVIDED
  4. METOPROLOL [Concomitant]
     Active Substance: METOPROLOL
     Dosage: NOT PROVIDED
  5. CARBIDOPA\LEVODOPA [Concomitant]
     Active Substance: CARBIDOPA\LEVODOPA
     Dosage: NOT PROVIDED
  6. GOCOVRI [Concomitant]
     Active Substance: AMANTADINE
     Dosage: NOT PROVIDED
  7. SYNTHROID [Concomitant]
     Active Substance: LEVOTHYROXINE SODIUM
     Dosage: NOT PROVIDED
  8. XADAGO [Concomitant]
     Active Substance: SAFINAMIDE MESYLATE
     Dosage: NOT PROVIDED
  9. ELIQUIS [Concomitant]
     Active Substance: APIXABAN
     Dosage: NOT PROVIDED
  10. GEMTESA [Concomitant]
     Active Substance: VIBEGRON
     Dosage: NOT PROVIDED

REACTIONS (7)
  - Presyncope [Recovered/Resolved]
  - Brain fog [Unknown]
  - Hyperhidrosis [Recovered/Resolved]
  - Paraesthesia [Recovered/Resolved]
  - Contusion [Recovered/Resolved]
  - Gait disturbance [Unknown]
  - Nausea [Recovered/Resolved]

NARRATIVE: CASE EVENT DATE: 20251027
